FAERS Safety Report 14187593 (Version 1)
Quarter: 2017Q4

REPORT INFORMATION
  Report Type: Spontaneous
  Country: US (occurrence: US)
  Receive Date: 20171114
  Receipt Date: 20171114
  Transmission Date: 20180321
  Serious: Yes (Other)
  Sender: FDA-Public Use
  Company Number: US-STANDARD HOMEOPATHIC COMPANY-2034020

PATIENT
  Age: 75 Year
  Sex: Female

DRUGS (1)
  1. HYLAND^S CALMS NERVE TENSION SLEEPLESSNESS [Suspect]
     Active Substance: HOMEOPATHICS
     Indication: INSOMNIA
     Route: 048

REACTIONS (1)
  - Heart rate decreased [None]

NARRATIVE: CASE EVENT DATE: 201610
